FAERS Safety Report 11195463 (Version 1)
Quarter: 2015Q2

REPORT INFORMATION
  Report Type: Spontaneous
  Country: CH (occurrence: CH)
  Receive Date: 20150617
  Receipt Date: 20150617
  Transmission Date: 20150821
  Serious: Yes (Hospitalization, Other)
  Sender: FDA-Public Use
  Company Number: CH-ACTAVIS-2015-11728

PATIENT
  Age: 47 Year
  Sex: Female

DRUGS (1)
  1. FENTANYL (UNKNOWN) [Suspect]
     Active Substance: FENTANYL
     Indication: SPINAL PAIN
     Dosage: 21600 MCG OVER 10 HOURS (CONCENTRATION 6 MG/ML)
     Route: 037

REACTIONS (4)
  - Coma [Recovered/Resolved]
  - Accidental overdose [Recovered/Resolved]
  - Device infusion issue [Recovered/Resolved]
  - Product use issue [Recovered/Resolved]
